FAERS Safety Report 7098834-0 (Version None)
Quarter: 2010Q4

REPORT INFORMATION
  Report Type: 
  Country: None (occurrence: None)
  Receive Date: 20101112
  Receipt Date: 20080613
  Transmission Date: 20110411
  Serious: No
  Sender: FDA-Public Use
  Company Number: US-KINGPHARMUSA00001-K200800696

PATIENT
  Age: 47 Year
  Sex: Female
  Weight: 54.422 kg

DRUGS (3)
  1. TAPAZOLE [Suspect]
     Indication: HYPERTHYROIDISM
     Dosage: 20 MG, QD
     Route: 048
     Dates: start: 20080401, end: 20080601
  2. TAPAZOLE [Suspect]
     Dosage: 10 MG, QD
     Route: 048
     Dates: start: 20080601
  3. ATENOLOL [Concomitant]
     Indication: HYPERTHYROIDISM
     Dosage: 25 MG, QD
     Route: 048
     Dates: start: 20080401

REACTIONS (1)
  - BREAST CYST [None]
